FAERS Safety Report 9830759 (Version 2)
Quarter: 2014Q1

REPORT INFORMATION
  Report Type: Report from Study
  Country: US (occurrence: US)
  Receive Date: 20140120
  Receipt Date: 20140120
  Transmission Date: 20141002
  Serious: Yes (Death, Other)
  Sender: FDA-Public Use
  Company Number: US-PURDUE-USA-2012-0096964

PATIENT
  Age: 49 Year
  Sex: Female

DRUGS (2)
  1. OXYCONTIN (NDA 22-272) [Suspect]
     Indication: PAIN
     Dosage: 80 MG, TID
     Route: 048
  2. OXYCONTIN (NDA 22-272) [Suspect]
     Dosage: 160 MG, BID
     Route: 048

REACTIONS (4)
  - Breast cancer [Fatal]
  - Lung neoplasm malignant [Fatal]
  - Renal cancer [Fatal]
  - Pain [Not Recovered/Not Resolved]
